FAERS Safety Report 5406581-3 (Version None)
Quarter: 2007Q3

REPORT INFORMATION
  Report Type: 
  Country: None (occurrence: None)
  Receive Date: 20070806
  Receipt Date: 20070726
  Transmission Date: 20080115
  Serious: Yes (Life-Threatening, Other)
  Sender: FDA-Public Use
  Company Number: CA-PFIZER INC-2007057575

PATIENT
  Sex: Male
  Weight: 80 kg

DRUGS (6)
  1. SUTENT [Suspect]
     Indication: RENAL CELL CARCINOMA STAGE UNSPECIFIED
     Route: 048
     Dates: start: 20070615, end: 20070701
  2. LISINOPRIL [Concomitant]
  3. MONOCOR [Concomitant]
  4. MINOXIDIL [Concomitant]
  5. MICARDIS [Concomitant]
  6. NITROGLYCERIN [Concomitant]

REACTIONS (3)
  - BLOOD PRESSURE INCREASED [None]
  - CARDIAC ARREST [None]
  - GRAND MAL CONVULSION [None]
